FAERS Safety Report 12713320 (Version 6)
Quarter: 2021Q1

REPORT INFORMATION
  Report Type: Spontaneous
  Country: CA (occurrence: CA)
  Receive Date: 20160902
  Receipt Date: 20210119
  Transmission Date: 20210419
  Serious: Yes (Hospitalization, Other)
  Sender: FDA-Public Use
  Company Number: CA-BAXTER-2016BAX045339

PATIENT
  Age: 58 Year
  Sex: Female

DRUGS (37)
  1. FORANE [Suspect]
     Active Substance: ISOFLURANE
     Indication: STATUS EPILEPTICUS
     Dosage: LIQUID INHALATION
     Route: 055
  2. FORANE [Suspect]
     Active Substance: ISOFLURANE
     Indication: OFF LABEL USE
     Dosage: INHALATION GAS
     Route: 055
  3. KETAMINE HYDROCHLORIDE. [Suspect]
     Active Substance: KETAMINE HYDROCHLORIDE
     Indication: STATUS EPILEPTICUS
     Dosage: SOLUTION INTRAMUSCULAR INJECTION USP
     Route: 065
  4. LEVETIRACETAM. [Suspect]
     Active Substance: LEVETIRACETAM
     Indication: STATUS EPILEPTICUS
     Dosage: DOSAGE FORM: TABLET
     Route: 065
  5. MIDAZOLAM HYDROCHLORIDE. [Suspect]
     Active Substance: MIDAZOLAM HYDROCHLORIDE
     Indication: SEIZURE
     Route: 065
  6. PHENYTOIN. [Suspect]
     Active Substance: PHENYTOIN
     Indication: SEIZURE
     Dosage: DOSAGE FORM: NOT SPECIFIED
     Route: 065
  7. APO?MIDAZOLAM [Suspect]
     Active Substance: MIDAZOLAM HYDROCHLORIDE
     Indication: STATUS EPILEPTICUS
     Dosage: LIQUID INTRAMUSCULAR
     Route: 065
  8. KEPPRA [Suspect]
     Active Substance: LEVETIRACETAM
     Indication: STATUS EPILEPTICUS
     Dosage: DOSAGE FORM: TABLETS
     Route: 065
  9. PIPERACILLIN SODIUM/TAZOBACTAM SODIUM [Concomitant]
     Active Substance: PIPERACILLIN SODIUM\TAZOBACTAM SODIUM
     Indication: PRODUCT USED FOR UNKNOWN INDICATION
     Route: 065
  10. PHENOBARBITAL. [Concomitant]
     Active Substance: PHENOBARBITAL
     Indication: PRODUCT USED FOR UNKNOWN INDICATION
     Dosage: SOLUTION INTRAMUSCULAR
     Route: 065
  11. PROPOFOL MYLAN [Suspect]
     Active Substance: PROPOFOL
     Indication: SEIZURE
     Route: 065
  12. KETAMINE HYDROCHLORIDE. [Suspect]
     Active Substance: KETAMINE HYDROCHLORIDE
     Indication: ANAESTHESIA PROCEDURE
     Dosage: DOSAGE FORM: NOT SPECIFIED
     Route: 065
  13. VALPROIC ACID. [Suspect]
     Active Substance: VALPROIC ACID
     Indication: SEIZURE
     Dosage: DOSAGE FORM: NOT SPECIFIED
     Route: 065
  14. METHYLPREDNISOLONE. [Suspect]
     Active Substance: METHYLPREDNISOLONE
     Indication: STATUS EPILEPTICUS
     Route: 042
  15. PHENOBARBITAL. [Concomitant]
     Active Substance: PHENOBARBITAL
     Route: 065
  16. VALPROIC ACID. [Concomitant]
     Active Substance: VALPROIC ACID
     Indication: PRODUCT USED FOR UNKNOWN INDICATION
     Route: 065
  17. TEGRETOL [Concomitant]
     Active Substance: CARBAMAZEPINE
     Indication: PRODUCT USED FOR UNKNOWN INDICATION
     Dosage: DOSAGE FORM: NOT SPECIFIED
     Route: 065
  18. MIDAZOLAM. [Suspect]
     Active Substance: MIDAZOLAM
     Indication: ELECTROENCEPHALOGRAM ABNORMAL
     Dosage: SOLUTION INTRAMUSCULAR
     Route: 065
  19. PIPERACILLIN SODIUM/TAZOBACTAM SODIUM [Concomitant]
     Active Substance: PIPERACILLIN SODIUM\TAZOBACTAM SODIUM
     Indication: APPENDICITIS
     Route: 065
  20. LEVETIRACETAM. [Suspect]
     Active Substance: LEVETIRACETAM
     Indication: SEIZURE
     Dosage: DOSAGE FORM: TABLET
     Route: 065
  21. PHENOBARBITAL. [Suspect]
     Active Substance: PHENOBARBITAL
     Dosage: DOSAGE FORM: NOT SPECIFIED
     Route: 065
  22. PHENYTOIN. [Concomitant]
     Active Substance: PHENYTOIN
     Indication: SEIZURE
     Route: 065
  23. PHENOBARBITAL. [Suspect]
     Active Substance: PHENOBARBITAL
     Indication: SEIZURE
     Route: 065
  24. METHYLPREDNISOLONE SODIUM SUCCINATE. [Suspect]
     Active Substance: METHYLPREDNISOLONE SODIUM SUCCINATE
     Indication: PRODUCT USED FOR UNKNOWN INDICATION
     Route: 042
  25. MIDAZOLAM. [Suspect]
     Active Substance: MIDAZOLAM
     Indication: STATUS EPILEPTICUS
  26. METHYLPREDNISOLONE. [Suspect]
     Active Substance: METHYLPREDNISOLONE
     Route: 042
  27. PROPOFOL MYLAN [Suspect]
     Active Substance: PROPOFOL
     Indication: STATUS EPILEPTICUS
  28. PHENOBARBITAL. [Suspect]
     Active Substance: PHENOBARBITAL
     Indication: STATUS EPILEPTICUS
     Dosage: DOSAGE FORM: NOT SPECIFIED
     Route: 065
  29. PHENYTOIN. [Suspect]
     Active Substance: PHENYTOIN
     Indication: STATUS EPILEPTICUS
     Dosage: DOSAGE FORM: NOT SPECIFIED
     Route: 065
  30. MIDAZOLAM. [Suspect]
     Active Substance: MIDAZOLAM
     Indication: SEIZURE
     Route: 065
  31. PROPOFOL MYLAN [Suspect]
     Active Substance: PROPOFOL
     Indication: ELECTROENCEPHALOGRAM ABNORMAL
     Route: 065
  32. VALPROIC ACID. [Suspect]
     Active Substance: VALPROIC ACID
     Indication: STATUS EPILEPTICUS
     Dosage: DOSAGE FORM: NOT SPECIFIED
     Route: 065
  33. METHYLPREDNISOLONE NOS [Concomitant]
     Active Substance: METHYLPREDNISOLONE
     Indication: STATUS EPILEPTICUS
     Route: 065
  34. LEVETIRACETAM. [Concomitant]
     Active Substance: LEVETIRACETAM
     Indication: PRODUCT USED FOR UNKNOWN INDICATION
     Route: 065
  35. FORANE [Suspect]
     Active Substance: ISOFLURANE
     Indication: SEIZURE
     Route: 065
  36. PHENOBARBITAL. [Suspect]
     Active Substance: PHENOBARBITAL
     Route: 065
  37. APO?LEVETIRACETAM [Suspect]
     Active Substance: LEVETIRACETAM
     Indication: STATUS EPILEPTICUS
     Route: 065

REACTIONS (20)
  - Maternal exposure during pregnancy [Recovered/Resolved]
  - Hypotension [Recovered/Resolved]
  - Perforation [Recovered/Resolved]
  - Carbohydrate antigen 125 increased [Recovered/Resolved]
  - Ultrasound ovary abnormal [Recovered/Resolved]
  - Abdominal distension [Recovered/Resolved]
  - Intestinal infarction [Recovered/Resolved]
  - Large intestine perforation [Recovered/Resolved]
  - Abscess [Recovered/Resolved]
  - Intestinal ischaemia [Recovered/Resolved]
  - Pneumatosis [Recovered/Resolved]
  - Left ventricular hypertrophy [Recovered/Resolved]
  - Drug ineffective for unapproved indication [Recovered/Resolved]
  - Intra-abdominal pressure increased [Recovered/Resolved]
  - Cardiomegaly [Recovered/Resolved]
  - Off label use [Recovered/Resolved]
  - Systemic inflammatory response syndrome [Recovered/Resolved]
  - Procedural intestinal perforation [Recovered/Resolved]
  - Necrosis ischaemic [Recovered/Resolved]
  - Vomiting [Recovered/Resolved]
